FAERS Safety Report 18511067 (Version 1)
Quarter: 2020Q4

REPORT INFORMATION
  Report Type: Report from Study
  Country: ES (occurrence: ES)
  Receive Date: 20201117
  Receipt Date: 20201117
  Transmission Date: 20210114
  Serious: Yes (Hospitalization, Other)
  Sender: FDA-Public Use
  Company Number: ES-MYLANLABS-2020M1093948

PATIENT
  Age: 85 Year
  Sex: Female
  Weight: 96 kg

DRUGS (3)
  1. METFORMIN [Suspect]
     Active Substance: METFORMIN HYDROCHLORIDE
     Indication: TYPE 2 DIABETES MELLITUS
     Dosage: 1 DF (TABLET), Q8H
     Route: 048
     Dates: end: 2020
  2. METFORMIN [Suspect]
     Active Substance: METFORMIN HYDROCHLORIDE
     Dosage: 0.5 DOSAGE FORM, Q8H
     Route: 048
     Dates: start: 2020
  3. INSULIN GLARGINE [Suspect]
     Active Substance: INSULIN GLARGINE
     Indication: TYPE 2 DIABETES MELLITUS
     Dosage: 50 IU
     Route: 058

REACTIONS (5)
  - Haematochezia [Unknown]
  - Blood glucose increased [Unknown]
  - Anaemia [Unknown]
  - Haemorrhage [Recovered/Resolved]
  - Diarrhoea [Recovering/Resolving]

NARRATIVE: CASE EVENT DATE: 201912
